FAERS Safety Report 6874507-1 (Version None)
Quarter: 2010Q3

REPORT INFORMATION
  Report Type: 
  Country: None (occurrence: None)
  Receive Date: 20100723
  Receipt Date: 20100723
  Transmission Date: 20110219
  Serious: Yes (Other)
  Sender: FDA-Public Use
  Company Number: None

PATIENT
  Age: 48 Year
  Sex: Female
  Weight: 68.4932 kg

DRUGS (1)
  1. VIBATIV [Suspect]
     Indication: INFECTION
     Dosage: 750MG DAILY IV
     Route: 042
     Dates: start: 20100609, end: 20100619

REACTIONS (3)
  - CHEST DISCOMFORT [None]
  - DYSPNOEA [None]
  - PARAESTHESIA [None]
